FAERS Safety Report 26086918 (Version 1)
Quarter: 2025Q4

REPORT INFORMATION
  Report Type: Spontaneous
  Country: CN (occurrence: CN)
  Receive Date: 20251125
  Receipt Date: 20251125
  Transmission Date: 20260117
  Serious: Yes (Hospitalization)
  Sender: NOVARTIS
  Company Number: CN-002147023-NVSC2025CN178594

PATIENT
  Age: 66 Year
  Sex: Male
  Weight: 60 kg

DRUGS (3)
  1. TAFINLAR [Suspect]
     Active Substance: DABRAFENIB MESYLATE
     Indication: Lung neoplasm malignant
     Dosage: 2 DOSAGE FORM, BID
     Route: 048
     Dates: start: 20240322, end: 20251014
  2. TAFINLAR [Suspect]
     Active Substance: DABRAFENIB MESYLATE
     Indication: Adenocarcinoma
  3. TRAMETINIB [Concomitant]
     Active Substance: TRAMETINIB
     Indication: Adenocarcinoma
     Dosage: UNK
     Route: 065
     Dates: start: 20240322

REACTIONS (2)
  - Liver injury [Recovered/Resolved]
  - Blood creatinine increased [Recovered/Resolved]

NARRATIVE: CASE EVENT DATE: 20251014
